FAERS Safety Report 9668455 (Version 2)
Quarter: 2013Q4

REPORT INFORMATION
  Report Type: Report from Study
  Country: CA (occurrence: CA)
  Receive Date: 20131105
  Receipt Date: 20131226
  Transmission Date: 20140711
  Serious: Yes (Hospitalization, Other)
  Sender: FDA-Public Use
  Company Number: CA-ROCHE-1297679

PATIENT
  Age: 83 Year
  Sex: Male
  Weight: 69.5 kg

DRUGS (4)
  1. RANIBIZUMAB [Suspect]
     Indication: AGE-RELATED MACULAR DEGENERATION
     Route: 050
     Dates: start: 20091008
  2. RANIBIZUMAB [Suspect]
     Dosage: REGIMEN:2
     Route: 050
     Dates: start: 20130319
  3. RANIBIZUMAB [Suspect]
     Dosage: REGIMEN : 3
     Route: 050
     Dates: start: 20130807
  4. RANIBIZUMAB [Suspect]
     Route: 050
     Dates: start: 20130905

REACTIONS (8)
  - Weight increased [Unknown]
  - Myocardial infarction [Recovered/Resolved]
  - Pneumonia [Recovering/Resolving]
  - Cardiac failure congestive [Recovering/Resolving]
  - Fluid retention [Recovering/Resolving]
  - Atrial fibrillation [Not Recovered/Not Resolved]
  - Mitral valve incompetence [Not Recovered/Not Resolved]
  - Tricuspid valve incompetence [Not Recovered/Not Resolved]
